FAERS Safety Report 13077461 (Version 1)
Quarter: 2016Q4

REPORT INFORMATION
  Report Type: Spontaneous
  Country: IT (occurrence: IT)
  Receive Date: 20161231
  Receipt Date: 20161231
  Transmission Date: 20170207
  Serious: Yes (Hospitalization)
  Sender: FDA-Public Use
  Company Number: IT-BAXTER-2016BAX065102

PATIENT
  Age: 24 Year
  Sex: Female
  Weight: 47 kg

DRUGS (3)
  1. VANCOTEX [Suspect]
     Active Substance: VANCOMYCIN HYDROCHLORIDE
     Indication: POSTOPERATIVE WOUND INFECTION
     Route: 042
     Dates: start: 20161123, end: 20161201
  2. TEXTAZO [Suspect]
     Active Substance: PIPERACILLIN SODIUM\TAZOBACTAM SODIUM
     Indication: POSTOPERATIVE WOUND INFECTION
     Route: 042
     Dates: start: 20161121, end: 20161201
  3. METRONIDAZOLO BAXTER 0,5% [Suspect]
     Active Substance: METRONIDAZOLE
     Indication: POSTOPERATIVE WOUND INFECTION
     Route: 042
     Dates: start: 20161123, end: 20161201

REACTIONS (1)
  - Acute kidney injury [Recovered/Resolved]

NARRATIVE: CASE EVENT DATE: 20161201
